FAERS Safety Report 9186347 (Version 1)
Quarter: 2013Q1

REPORT INFORMATION
  Report Type: Report from Study
  Country: BR (occurrence: BR)
  Receive Date: 20130325
  Receipt Date: 20130325
  Transmission Date: 20140127
  Serious: Yes (Death, Congenital Anomaly)
  Sender: FDA-Public Use
  Company Number: BR-ROCHE-1203709

PATIENT
  Sex: Male

DRUGS (1)
  1. AVASTIN [Suspect]
     Indication: PRODUCT USED FOR UNKNOWN INDICATION
     Dosage: ENTIRE RECOMMENDED DOSE
     Route: 064
     Dates: start: 201105

REACTIONS (2)
  - Foetal malformation [Fatal]
  - Cardiac arrest [Fatal]
